FAERS Safety Report 4367757-X (Version None)
Quarter: 2004Q2

REPORT INFORMATION
  Report Type: 
  Country: None (occurrence: None)
  Receive Date: 20040601
  Receipt Date: 20040422
  Transmission Date: 20050107
  Serious: Yes (Hospitalization, Other)
  Sender: FDA-Public Use
  Company Number: PHBS2004JP05554

PATIENT
  Age: 77 Year
  Sex: Male
  Weight: 77 kg

DRUGS (6)
  1. DIOVAN [Suspect]
     Dosage: 40 MG/DAY
     Route: 048
     Dates: start: 20040309, end: 20040315
  2. VOLTAREN-XR [Suspect]
     Dosage: 37.5 MG, BID
     Route: 048
     Dates: start: 20021109, end: 20040315
  3. MUCOSTA [Suspect]
     Dosage: 100 MG, BID
     Route: 048
     Dates: start: 20021109, end: 20040315
  4. EVAMYL [Suspect]
     Dosage: 2 MG, QD
     Route: 048
     Dates: start: 20021114, end: 20040315
  5. FLIVAS [Suspect]
     Dosage: 50 MG, QD
     Route: 048
     Dates: start: 20040109, end: 20040315
  6. MUCODYNE [Suspect]
     Dosage: 250 MG, TID
     Route: 048
     Dates: start: 20040219

REACTIONS (11)
  - ALANINE AMINOTRANSFERASE INCREASED [None]
  - ASPARTATE AMINOTRANSFERASE INCREASED [None]
  - ASTHENIA [None]
  - BLOOD CREATINE PHOSPHOKINASE INCREASED [None]
  - BLOOD LACTATE DEHYDROGENASE INCREASED [None]
  - GAMMA-GLUTAMYLTRANSFERASE INCREASED [None]
  - MYOGLOBIN BLOOD INCREASED [None]
  - PYREXIA [None]
  - RASH [None]
  - RHABDOMYOLYSIS [None]
  - URTICARIA [None]
